FAERS Safety Report 15665516 (Version 1)
Quarter: 2018Q4

REPORT INFORMATION
  Report Type: Spontaneous
  Country: NZ (occurrence: NZ)
  Receive Date: 20181128
  Receipt Date: 20181128
  Transmission Date: 20190205
  Serious: Yes (Other)
  Sender: FDA-Public Use
  Company Number: NZ-LPDUSPRD-20182202

PATIENT
  Age: 34 Year
  Sex: Female

DRUGS (2)
  1. OMEPRAZOLE. [Concomitant]
     Active Substance: OMEPRAZOLE
     Dosage: UNKNOWN
     Route: 065
     Dates: start: 201811
  2. FERINJECT [Suspect]
     Active Substance: FERRIC CARBOXYMALTOSE
     Dosage: 1000 MG
     Route: 041
     Dates: start: 20181105, end: 201811

REACTIONS (7)
  - Chest pain [Unknown]
  - Musculoskeletal pain [Unknown]
  - Epistaxis [Unknown]
  - Urticaria [Unknown]
  - Tachycardia [Unknown]
  - Throat irritation [Recovered/Resolved]
  - Influenza like illness [Unknown]

NARRATIVE: CASE EVENT DATE: 201811
